FAERS Safety Report 9148760 (Version 3)
Quarter: 2013Q2

REPORT INFORMATION
  Report Type: Report from Study
  Country: US (occurrence: US)
  Receive Date: 20130308
  Receipt Date: 20130507
  Transmission Date: 20140414
  Serious: Yes (Death, Hospitalization)
  Sender: FDA-Public Use
  Company Number: US-BAYER-2012-070433

PATIENT
  Age: 65 Year
  Sex: Male
  Weight: 90.88 kg

DRUGS (12)
  1. REGORAFENIB [Suspect]
     Indication: COLORECTAL CANCER METASTATIC
     Dosage: 160 MG, QD
     Route: 048
     Dates: start: 20120625, end: 20120707
  2. REGORAFENIB [Suspect]
     Indication: COLORECTAL CANCER METASTATIC
     Dosage: INTERRUPTION DUE TO RESPIRATORY SYMPTOMS
     Dates: start: 20120708, end: 20120709
  3. REGORAFENIB [Suspect]
     Indication: COLORECTAL CANCER METASTATIC
     Dosage: 160 MG, QD
     Route: 048
     Dates: start: 20120701, end: 20120715
  4. REGORAFENIB [Suspect]
     Indication: COLORECTAL CANCER METASTATIC
     Dosage: 160 MG, QD
     Route: 048
     Dates: start: 20120710, end: 20120715
  5. HYDROCODONE [Concomitant]
     Indication: MUSCULOSKELETAL PAIN
     Dosage: 5/325
     Route: 048
  6. AMLODIPINE [Concomitant]
     Indication: HYPERTENSION
     Dosage: 10 MG, QD
     Route: 048
  7. BENAZEPRIL [Concomitant]
     Indication: HYPERTENSION
     Dosage: 20 MG, QD
     Route: 048
  8. HYDROCHLOROTHIAZIDE [Concomitant]
     Indication: OEDEMA
     Dosage: 25 MG, QD
     Route: 048
  9. DEXTROMETHORPHAN [Concomitant]
     Indication: COUGH
     Dosage: 2 TSP
     Route: 048
  10. LORAZEPAM [Concomitant]
     Indication: ANXIETY
     Dosage: 1 MG, QD
     Route: 048
  11. LOVENOX [Concomitant]
     Indication: EMBOLISM
     Dosage: 40 MG, QD
     Route: 058
     Dates: start: 20120709
  12. FENTANYL [Concomitant]
     Indication: MUSCULOSKELETAL PAIN
     Dosage: 12 ?G, QD
     Route: 062
     Dates: start: 20120725

REACTIONS (3)
  - Dyspnoea [Unknown]
  - Oedema peripheral [Not Recovered/Not Resolved]
  - Anxiety [Recovered/Resolved]
